FAERS Safety Report 15527043 (Version 1)
Quarter: 2018Q4

REPORT INFORMATION
  Report Type: Spontaneous
  Country: US (occurrence: US)
  Receive Date: 20181018
  Receipt Date: 20181018
  Transmission Date: 20190205
  Serious: Yes (Hospitalization)
  Sender: FDA-Public Use
  Company Number: PHHY2018US124100

PATIENT
  Age: 26 Year
  Sex: Female

DRUGS (2)
  1. HYDROXYCHLOROQUINE [Suspect]
     Active Substance: HYDROXYCHLOROQUINE
     Indication: PRODUCT USED FOR UNKNOWN INDICATION
     Dosage: 200 MG, UNK (TWENTY TABLETS)
     Route: 048
  2. ALCOHOL. [Suspect]
     Active Substance: ALCOHOL
     Indication: PRODUCT USED FOR UNKNOWN INDICATION
     Route: 048

REACTIONS (8)
  - Hypoxia [Unknown]
  - Systemic lupus erythematosus [Unknown]
  - Hypotension [Recovered/Resolved]
  - Pulmonary alveolar haemorrhage [Unknown]
  - Torsade de pointes [Recovered/Resolved]
  - Hypokalaemia [Unknown]
  - Overdose [Unknown]
  - Suicide attempt [Unknown]
